FAERS Safety Report 19561490 (Version 3)
Quarter: 2021Q4

REPORT INFORMATION
  Report Type: Spontaneous
  Country: US (occurrence: US)
  Receive Date: 20210716
  Receipt Date: 20211018
  Transmission Date: 20220304
  Serious: No
  Sender: FDA-Public Use
  Company Number: NVSC2021US151093

PATIENT
  Sex: Female

DRUGS (1)
  1. COSENTYX [Suspect]
     Active Substance: SECUKINUMAB
     Indication: Product used for unknown indication
     Dosage: 150 MG, Q2W
     Route: 065

REACTIONS (6)
  - Injection site pain [Unknown]
  - Needle issue [Unknown]
  - Device dispensing error [Unknown]
  - Prescribed underdose [Unknown]
  - Device malfunction [Unknown]
  - Inappropriate schedule of product administration [Unknown]
